FAERS Safety Report 12797996 (Version 1)
Quarter: 2016Q3

REPORT INFORMATION
  Report Type: Spontaneous
  Country: LB (occurrence: LB)
  Receive Date: 20160930
  Receipt Date: 20160930
  Transmission Date: 20161109
  Serious: Yes (Death, Life-Threatening, Hospitalization, Other)
  Sender: FDA-Public Use
  Company Number: US-ASTRAZENECA-2016SF03574

PATIENT
  Age: 65 Year
  Sex: Female
  Weight: 80 kg

DRUGS (13)
  1. NEXIUM [Suspect]
     Active Substance: ESOMEPRAZOLE MAGNESIUM
     Route: 042
  2. PANADOL [Suspect]
     Active Substance: ACETAMINOPHEN
     Indication: PAIN
     Dosage: 1000 MG, (500 MG TWO TABLETS) AS NEEDED
     Route: 048
  3. MORPHINE SULFATE. [Concomitant]
     Active Substance: MORPHINE SULFATE
     Indication: PAIN
     Dosage: 2 MG, 2X/DAY
     Route: 058
  4. NEXIUM [Suspect]
     Active Substance: ESOMEPRAZOLE MAGNESIUM
     Route: 042
  5. RIMIFON [Suspect]
     Active Substance: ISONIAZID
     Indication: TUBERCULOSIS
     Dosage: 300 MG, (150 MG TWO TABLETS) DAILY
     Route: 048
  6. PANADOL [Suspect]
     Active Substance: ACETAMINOPHEN
     Indication: HEADACHE
     Dosage: 1000 MG, (500 MG TWO TABLETS) AS NEEDED
     Route: 048
  7. PRIMPERAN [Suspect]
     Active Substance: METOCLOPRAMIDE HYDROCHLORIDE
     Indication: PAIN
     Dosage: 10.0MG UNKNOWN
     Route: 042
  8. BUSCOPAN [Concomitant]
     Active Substance: BUTYLSCOPOLAMINE BROMIDE
     Indication: ABDOMINAL PAIN
     Dosage: 1 AMPOULE OF 20 MG IV EVERY 8 HOURS
     Route: 042
  9. PROFENID [Suspect]
     Active Substance: KETOPROFEN
     Indication: PAIN
     Dosage: 100 MG, AS NEEDED EVERY 8 HOURS
     Route: 042
  10. NORMAL SALINE [Concomitant]
     Active Substance: SODIUM CHLORIDE
     Route: 065
  11. ALBUMIN [Concomitant]
     Active Substance: ALBUMIN HUMAN
     Indication: PAIN
     Dosage: 20.0% UNKNOWN
     Route: 042
  12. NORMAL SALINE [Concomitant]
     Active Substance: SODIUM CHLORIDE
     Route: 065
  13. KONAKION [Concomitant]
     Active Substance: PHYTONADIONE
     Dosage: UNK
     Route: 065

REACTIONS (7)
  - Cardiopulmonary failure [Fatal]
  - Streptococcal infection [Unknown]
  - Neisseria infection [Unknown]
  - Drug-induced liver injury [Fatal]
  - Hypoglycaemia [Unknown]
  - Acute kidney injury [Unknown]
  - Oxygen saturation decreased [Unknown]
